FAERS Safety Report 9420693 (Version 1)
Quarter: 2013Q3

REPORT INFORMATION
  Report Type: Spontaneous
  Country: US (occurrence: US)
  Receive Date: 20130725
  Receipt Date: 20130725
  Transmission Date: 20140515
  Serious: No
  Sender: FDA-Public Use
  Company Number: US-ABBOTT-13P-163-1072768-00

PATIENT
  Age: 70 Year
  Sex: Female
  Weight: 49.94 kg

DRUGS (2)
  1. SYNTHROID [Suspect]
     Indication: HYPOTHYROIDISM
     Dosage: HALF A TABLET DAILY
     Route: 048
     Dates: start: 2008
  2. SYNTHROID [Suspect]
     Indication: HYPOTHYROIDISM

REACTIONS (3)
  - Rash [Not Recovered/Not Resolved]
  - Dermatitis [Unknown]
  - Wrong technique in drug usage process [Unknown]
